FAERS Safety Report 18189909 (Version 3)
Quarter: 2022Q3

REPORT INFORMATION
  Report Type: Spontaneous
  Country: US (occurrence: US)
  Receive Date: 20200825
  Receipt Date: 20220829
  Transmission Date: 20221027
  Serious: No
  Sender: FDA-Public Use
  Company Number: US-BIOGEN-2020BI00914157

PATIENT
  Sex: Male

DRUGS (1)
  1. TYSABRI [Suspect]
     Active Substance: NATALIZUMAB
     Indication: Multiple sclerosis
     Route: 050
     Dates: start: 20200814

REACTIONS (6)
  - Back pain [Not Recovered/Not Resolved]
  - Asthenia [Not Recovered/Not Resolved]
  - Migraine [Not Recovered/Not Resolved]
  - Multiple sclerosis [Unknown]
  - Arthralgia [Not Recovered/Not Resolved]
  - Fatigue [Unknown]
